FAERS Safety Report 5192425-4 (Version None)
Quarter: 2006Q4

REPORT INFORMATION
  Report Type: 
  Country: None (occurrence: None)
  Receive Date: 20061220
  Receipt Date: 20061207
  Transmission Date: 20070319
  Serious: Yes (Other)
  Sender: FDA-Public Use
  Company Number: 2006108459

PATIENT
  Age: 65 Year
  Sex: Female
  Weight: 54.8852 kg

DRUGS (4)
  1. SUTENT [Suspect]
     Indication: RENAL CELL CARCINOMA STAGE UNSPECIFIED
     Dosage: 50 MG (50 MG, QD: EVERY DAY), ORAL
     Route: 048
     Dates: start: 20060813, end: 20061026
  2. TYLENOL [Concomitant]
  3. ADVIL [Concomitant]
  4. ASPIRIN [Concomitant]

REACTIONS (39)
  - ABDOMINAL PAIN [None]
  - ALANINE AMINOTRANSFERASE INCREASED [None]
  - ASPARTATE AMINOTRANSFERASE INCREASED [None]
  - BLOOD CHLORIDE DECREASED [None]
  - BLOOD PRESSURE DECREASED [None]
  - BLOOD PRESSURE INCREASED [None]
  - BLOOD SODIUM DECREASED [None]
  - CONSTIPATION [None]
  - CONTUSION [None]
  - DIARRHOEA [None]
  - DRY MOUTH [None]
  - DYSGEUSIA [None]
  - EOSINOPHIL COUNT DECREASED [None]
  - EYE DISORDER [None]
  - EYE HAEMORRHAGE [None]
  - EYE SWELLING [None]
  - EYELASH DISCOLOURATION [None]
  - EYELID OEDEMA [None]
  - FATIGUE [None]
  - FEELING HOT [None]
  - FLATULENCE [None]
  - FLUID RETENTION [None]
  - GENERALISED OEDEMA [None]
  - GINGIVAL PAIN [None]
  - HAIR COLOUR CHANGES [None]
  - HEADACHE [None]
  - HEART RATE INCREASED [None]
  - INCREASED TENDENCY TO BRUISE [None]
  - JAUNDICE [None]
  - LUNG NEOPLASM [None]
  - MALIGNANT NEOPLASM PROGRESSION [None]
  - PAIN [None]
  - PLATELET COUNT DECREASED [None]
  - PROTEIN TOTAL DECREASED [None]
  - PRURITUS [None]
  - RASH [None]
  - TONGUE DISCOLOURATION [None]
  - WEIGHT DECREASED [None]
  - WHITE BLOOD CELL COUNT DECREASED [None]
